FAERS Safety Report 8613762 (Version 3)
Quarter: 2014Q1

REPORT INFORMATION
  Report Type: Spontaneous
  Country: US (occurrence: US)
  Receive Date: 20120614
  Receipt Date: 20140108
  Transmission Date: 20141002
  Serious: Yes (Hospitalization, Disabling, Other)
  Sender: FDA-Public Use
  Company Number: US-ASTRAZENECA-2012SE36221

PATIENT
  Age: 18132 Day
  Sex: Female

DRUGS (19)
  1. NEXIUM [Suspect]
     Indication: GASTROOESOPHAGEAL REFLUX DISEASE
     Route: 048
     Dates: end: 2012
  2. NEXIUM [Suspect]
     Indication: BARRETT^S OESOPHAGUS
     Route: 048
     Dates: end: 2012
  3. NEXIUM [Suspect]
     Indication: GASTROOESOPHAGEAL REFLUX DISEASE
     Dosage: OCCASIONALLY NEED TO TAKE TWO TIMES A DAY
     Route: 048
  4. NEXIUM [Suspect]
     Indication: BARRETT^S OESOPHAGUS
     Dosage: OCCASIONALLY NEED TO TAKE TWO TIMES A DAY
     Route: 048
  5. PRILOSEC [Suspect]
     Indication: GASTROOESOPHAGEAL REFLUX DISEASE
     Route: 048
  6. PRILOSEC [Suspect]
     Indication: BARRETT^S OESOPHAGUS
     Route: 048
  7. TUMS [Concomitant]
     Indication: DYSPEPSIA
     Dosage: PRN
  8. MAALOX [Concomitant]
     Indication: DYSPEPSIA
  9. SYNTHROID [Concomitant]
     Indication: HYPOTHYROIDISM
     Dosage: 2 MG
  10. TACROLIMUS [Concomitant]
     Dosage: 1 MG
  11. MYCOPHENOLATE [Concomitant]
     Dosage: 250MG
  12. SIMVASTATIN [Concomitant]
     Dosage: 40MG
  13. PREDNISONE [Concomitant]
     Dosage: 5MG
  14. ZOLOFT [Concomitant]
     Dosage: 50MG
  15. CARBAMAZEPINE [Concomitant]
     Dosage: 100MG
  16. FEXOFENADINE HCL [Concomitant]
     Dates: start: 20090219
  17. BULTALB ACETAMIN CAFF [Concomitant]
     Dates: start: 20080131
  18. PROGRAF [Concomitant]
     Dates: start: 20080110
  19. RENAGEL [Concomitant]
     Dates: start: 20070718

REACTIONS (22)
  - Retinopathy [Unknown]
  - Renal disorder [Unknown]
  - Ankle fracture [Unknown]
  - Foot fracture [Unknown]
  - Diabetes mellitus [Unknown]
  - Diabetic foot [Unknown]
  - Cerebrovascular accident [Unknown]
  - Osteoporosis [Unknown]
  - Osteopenia [Unknown]
  - Hypertension [Unknown]
  - Bone pain [Unknown]
  - Osteogenesis imperfecta [Unknown]
  - Calcium deficiency [Unknown]
  - Cataract [Unknown]
  - Chronic obstructive pulmonary disease [Unknown]
  - Arthritis [Unknown]
  - Cardiovascular disorder [Unknown]
  - Hypothyroidism [Unknown]
  - Vitamin D deficiency [Unknown]
  - Road traffic accident [Unknown]
  - Apnoea [Unknown]
  - Joint injury [Unknown]
